FAERS Safety Report 4747593-2 (Version None)
Quarter: 2005Q3

REPORT INFORMATION
  Report Type: 
  Country: None (occurrence: None)
  Receive Date: 20050818
  Receipt Date: 20041117
  Transmission Date: 20060218
  Serious: No
  Sender: FDA-Public Use
  Company Number: US-BRISTOL-MYERS SQUIBB COMPANY-12768503

PATIENT
  Age: 62 Year
  Sex: Female
  Weight: 51 kg

DRUGS (8)
  1. TEQUIN [Suspect]
     Indication: STREPTOCOCCAL INFECTION
     Route: 048
     Dates: start: 20041116, end: 20041116
  2. ESTRADIOL [Concomitant]
  3. ZYRTEC [Concomitant]
  4. DIFLUCAN [Concomitant]
  5. T-4 [Concomitant]
  6. TRIIODOTHYRONINE [Concomitant]
  7. DHEA [Concomitant]
  8. ZITHROMAX [Concomitant]
     Indication: STREPTOCOCCAL INFECTION

REACTIONS (4)
  - ANXIETY [None]
  - DYSPNOEA [None]
  - PRURITUS [None]
  - URTICARIA [None]
